FAERS Safety Report 7957364-1 (Version None)
Quarter: 2011Q4

REPORT INFORMATION
  Report Type: 
  Country: None (occurrence: None)
  Receive Date: 20111205
  Receipt Date: 20111125
  Transmission Date: 20120403
  Serious: Yes (Hospitalization)
  Sender: FDA-Public Use
  Company Number: PHHY2011GB103464

PATIENT
  Age: 80 Year
  Sex: Female

DRUGS (8)
  1. ATENOLOL [Concomitant]
  2. ACETAMINOPHEN AND CODEINE PHOSPHATE [Concomitant]
  3. TEMAZEPAM [Concomitant]
  4. TAFLUPROST [Concomitant]
  5. CARBOMER [Concomitant]
  6. PRAVASTATIN [Concomitant]
  7. CITALOPRAM [Suspect]
     Indication: DEPRESSION
     Dosage: 40 MG, UNK
     Dates: start: 20001001, end: 20111108
  8. LANSOPRAZOLE [Concomitant]

REACTIONS (7)
  - GASTROINTESTINAL HAEMORRHAGE [None]
  - INTRA-ABDOMINAL HAEMORRHAGE [None]
  - HYPOVOLAEMIA [None]
  - BLOOD PRESSURE DECREASED [None]
  - MELAENA [None]
  - DIZZINESS [None]
  - HAEMATEMESIS [None]
